FAERS Safety Report 6494770-9 (Version None)
Quarter: 2009Q4

REPORT INFORMATION
  Report Type: 
  Country: None (occurrence: None)
  Receive Date: 20091214
  Receipt Date: 20090323
  Transmission Date: 20100525
  Serious: No
  Sender: FDA-Public Use
  Company Number: US-BRISTOL-MYERS SQUIBB COMPANY-14558076

PATIENT
  Sex: Female

DRUGS (2)
  1. ABILIFY [Suspect]
     Indication: DEPRESSION
     Dosage: ON ABILIFY FOR 2 MONTHS
  2. ABILIFY [Suspect]
     Indication: ANXIETY
     Dosage: ON ABILIFY FOR 2 MONTHS

REACTIONS (7)
  - FACE OEDEMA [None]
  - INCREASED APPETITE [None]
  - INSOMNIA [None]
  - LOCALISED OEDEMA [None]
  - MYALGIA [None]
  - RASH PRURITIC [None]
  - WEIGHT INCREASED [None]
